FAERS Safety Report 24712788 (Version 1)
Quarter: 2024Q4

REPORT INFORMATION
  Report Type: Other
  Country: ES (occurrence: ES)
  Receive Date: 20241209
  Receipt Date: 20241209
  Transmission Date: 20250115
  Serious: Yes (Other)
  Sender: GLENMARK
  Company Number: None

PATIENT

DRUGS (4)
  1. LINEZOLID [Suspect]
     Active Substance: LINEZOLID
     Indication: Respiratory tract infection
     Dosage: 1-0-1
     Route: 048
     Dates: start: 20231229, end: 20240102
  2. LEVOFLOXACIN [Suspect]
     Active Substance: LEVOFLOXACIN
     Indication: Respiratory tract infection
     Dosage: 500 MILLIGRAM, QD
     Route: 048
     Dates: start: 20231224, end: 20240102
  3. CEFTRIAXONE [Suspect]
     Active Substance: CEFTRIAXONE
     Indication: Respiratory tract infection
     Dosage: 2GR/DIA
     Route: 042
     Dates: start: 20231226, end: 20231226
  4. QUETIAPINE [Suspect]
     Active Substance: QUETIAPINE
     Indication: Product used for unknown indication
     Dosage: 25 MILLIGRAM, QD (0-0-1)
     Route: 048
     Dates: start: 20231229, end: 20240102

REACTIONS (1)
  - Hepatitis cholestatic [Recovered/Resolved]

NARRATIVE: CASE EVENT DATE: 20240102
